FAERS Safety Report 6880361-4 (Version None)
Quarter: 2010Q3

REPORT INFORMATION
  Report Type: 
  Country: None (occurrence: None)
  Receive Date: 20100727
  Receipt Date: 20100716
  Transmission Date: 20110219
  Serious: Yes (Hospitalization)
  Sender: FDA-Public Use
  Company Number: US-KINGPHARMUSA00001-K201000908

PATIENT
  Age: 33 Year
  Sex: Female
  Weight: 47.166 kg

DRUGS (7)
  1. LEVOXYL [Suspect]
     Indication: AUTOIMMUNE THYROIDITIS
     Dosage: 25 MCG, QD
     Route: 048
     Dates: start: 20100301, end: 20100301
  2. LEVOXYL [Suspect]
     Dosage: 50 MCG, QD
     Route: 048
     Dates: start: 20100301, end: 20100301
  3. LEVOXYL [Suspect]
     Dosage: 75 MCG, QD
     Route: 048
     Dates: start: 20100301, end: 20100101
  4. LEVOXYL [Suspect]
     Dosage: 50 MCG, QD
     Route: 048
     Dates: start: 20100101, end: 20100101
  5. LEVOXYL [Suspect]
     Dosage: 25 MCG, QD
     Route: 048
     Dates: start: 20100101, end: 20100715
  6. XANAX [Concomitant]
     Indication: ANXIETY
     Dosage: UNK
  7. CLARINEX [Concomitant]
     Dosage: UNK

REACTIONS (8)
  - ABDOMINAL PAIN [None]
  - FLUSHING [None]
  - HYPERSENSITIVITY [None]
  - MALAISE [None]
  - MIGRAINE [None]
  - PANCREATIC ENZYMES INCREASED [None]
  - THYROXINE INCREASED [None]
  - WEIGHT DECREASED [None]
